FAERS Safety Report 9972843 (Version 1)
Quarter: 2014Q1

REPORT INFORMATION
  Report Type: Spontaneous
  Country: GB (occurrence: GB)
  Receive Date: 20140306
  Receipt Date: 20140306
  Transmission Date: 20141002
  Serious: Yes (Life-Threatening, Hospitalization)
  Sender: FDA-Public Use
  Company Number: GB-GLAXOSMITHKLINE-B0974322A

PATIENT
  Age: 70 Year
  Sex: Female
  Weight: 70 kg

DRUGS (21)
  1. ORLISTAT [Suspect]
     Indication: ADJUVANT THERAPY
     Dosage: 360MG PER DAY
     Route: 048
     Dates: end: 20140221
  2. ORLISTAT [Suspect]
     Indication: ADJUVANT THERAPY
     Dosage: 360MG PER DAY
     Route: 048
     Dates: start: 20131026, end: 20140219
  3. ASPIRIN [Concomitant]
  4. CETIRIZINE [Concomitant]
  5. DIPYRIDAMOLE [Concomitant]
  6. DOCUSATE [Concomitant]
  7. FEXOFENADINE HYDROCHLORIDE [Concomitant]
  8. FUROSEMIDE [Concomitant]
  9. HYDROXYZINE [Concomitant]
  10. LANSOPRAZOLE [Concomitant]
  11. LEVOTHYROXINE [Concomitant]
  12. LISINOPRIL [Concomitant]
  13. METOCLOPRAMIDE [Concomitant]
  14. PARACETAMOL [Concomitant]
  15. PREDNISOLONE [Concomitant]
  16. RANITIDINE [Concomitant]
  17. SENNA [Concomitant]
  18. SIMVASTATIN [Concomitant]
  19. TRAMADOL [Concomitant]
  20. TRIMETHOPRIM [Concomitant]
  21. ZOMORPH [Concomitant]

REACTIONS (4)
  - Renal failure acute [Recovering/Resolving]
  - Rash generalised [Unknown]
  - Pruritus [Unknown]
  - Metabolic acidosis [Recovering/Resolving]
